FAERS Safety Report 9503479 (Version 1)
Quarter: 2013Q1

REPORT INFORMATION
  Report Type: Spontaneous
  Country: US (occurrence: None)
  Receive Date: 20130226
  Receipt Date: 20130226
  Transmission Date: 20140127
  Serious: Yes (Hospitalization)
  Sender: FDA-Public Use
  Company Number: PHEH2012US011617

PATIENT
  Age: 78 Year
  Sex: Female

DRUGS (2)
  1. TOBI [Suspect]
     Indication: BRONCHIECTASIS
     Route: 055
     Dates: start: 20120207, end: 20120305
  2. TOBI [Suspect]
     Indication: PSEUDOMONAS INFECTION
     Route: 055
     Dates: start: 20120207, end: 20120305

REACTIONS (2)
  - Pneumonia pseudomonas aeruginosa [None]
  - Pneumonia [None]
